FAERS Safety Report 7331796-7 (Version None)
Quarter: 2011Q1

REPORT INFORMATION
  Report Type: 
  Country: None (occurrence: None)
  Receive Date: 20110304
  Receipt Date: 20090810
  Transmission Date: 20110831
  Serious: No
  Sender: FDA-Public Use
  Company Number: US-PFIZER INC-2009231250

PATIENT
  Sex: Female

DRUGS (2)
  1. OXYBUTYNIN [Concomitant]
     Dosage: UNK
  2. DILANTIN [Suspect]
     Indication: CONVULSION
     Dosage: UNK

REACTIONS (1)
  - HYPERSENSITIVITY [None]
